FAERS Safety Report 18279347 (Version 1)
Quarter: 2020Q3

REPORT INFORMATION
  Report Type: Spontaneous
  Country: US (occurrence: US)
  Receive Date: 20200917
  Receipt Date: 20200917
  Transmission Date: 20201103
  Serious: No
  Sender: FDA-Public Use
  Company Number: US-TEVA-2020-US-1828048

PATIENT
  Age: 26 Year
  Sex: Female

DRUGS (3)
  1. JUNEL FE 1.5/30 [Suspect]
     Active Substance: ETHINYL ESTRADIOL\NORETHINDRONE ACETATE
     Dosage: DOSE: 1800 (UNITS NOT REPORTED), DAILY
     Route: 065
     Dates: start: 20200908
  2. JUNEL FE 1.5/30 [Suspect]
     Active Substance: ETHINYL ESTRADIOL\NORETHINDRONE ACETATE
     Dosage: DOSE: 1800 (UNITS NOT REPORTED), DAILY
     Route: 065
     Dates: start: 20200907
  3. JUNEL FE 1.5/30 [Suspect]
     Active Substance: ETHINYL ESTRADIOL\NORETHINDRONE ACETATE
     Dosage: DOSE: 1800 (UNITS NOT REPORTED), DAILY
     Route: 065
     Dates: start: 202009

REACTIONS (5)
  - Skin discolouration [Unknown]
  - Urticaria [Unknown]
  - Pruritus [Unknown]
  - Allergic reaction to excipient [Unknown]
  - Product substitution issue [Unknown]

NARRATIVE: CASE EVENT DATE: 20200908
